FAERS Safety Report 5610562-4 (Version None)
Quarter: 2008Q1

REPORT INFORMATION
  Report Type: 
  Country: None (occurrence: None)
  Receive Date: 20080201
  Receipt Date: 20080122
  Transmission Date: 20080703
  Serious: Yes (Hospitalization)
  Sender: FDA-Public Use
  Company Number: FR-JNJFOC-20080105041

PATIENT
  Age: 69 Year
  Sex: Female

DRUGS (8)
  1. OFLOCET [Suspect]
     Indication: BACTERIAL INFECTION
     Route: 048
  2. PREVISCAN [Interacting]
     Route: 048
  3. PREVISCAN [Interacting]
     Indication: THROMBOSIS PROPHYLAXIS
     Route: 048
  4. SPASFON [Concomitant]
     Indication: ABDOMINAL PAIN
     Route: 048
  5. ZOPHREN [Concomitant]
     Indication: PROPHYLAXIS OF NAUSEA AND VOMITING
     Route: 048
  6. ZOPHREN [Concomitant]
     Route: 048
  7. IXPRIM [Concomitant]
     Route: 048
  8. IXPRIM [Concomitant]
     Indication: PAIN
     Route: 048

REACTIONS (3)
  - DRUG INTERACTION [None]
  - HAEMOGLOBIN DECREASED [None]
  - INTERNATIONAL NORMALISED RATIO INCREASED [None]
